FAERS Safety Report 25984902 (Version 1)
Quarter: 2025Q4

REPORT INFORMATION
  Report Type: Report from Study
  Country: US (occurrence: CA)
  Receive Date: 20251031
  Receipt Date: 20251031
  Transmission Date: 20260117
  Serious: Yes (Other)
  Sender: MYLAN
  Company Number: US-MYLANLABS-2025M1091967

PATIENT
  Sex: Female

DRUGS (8)
  1. CELEBREX [Suspect]
     Active Substance: CELECOXIB
     Indication: Product used for unknown indication
     Dosage: UNK (2 HOUR AFTER ENBREL)
  2. CELEBREX [Suspect]
     Active Substance: CELECOXIB
     Dosage: UNK (2 HOUR AFTER ENBREL)
     Route: 065
  3. CELEBREX [Suspect]
     Active Substance: CELECOXIB
     Dosage: UNK (2 HOUR AFTER ENBREL)
     Route: 065
  4. CELEBREX [Suspect]
     Active Substance: CELECOXIB
     Dosage: UNK (2 HOUR AFTER ENBREL)
  5. ENBREL [Suspect]
     Active Substance: ETANERCEPT
     Indication: Rheumatoid arthritis
     Dosage: 50 MILLIGRAM, QW
     Dates: start: 20250905
  6. ENBREL [Suspect]
     Active Substance: ETANERCEPT
     Dosage: 50 MILLIGRAM, QW
     Route: 065
     Dates: start: 20250905
  7. ENBREL [Suspect]
     Active Substance: ETANERCEPT
     Dosage: 50 MILLIGRAM, QW
     Route: 065
     Dates: start: 20250905
  8. ENBREL [Suspect]
     Active Substance: ETANERCEPT
     Dosage: 50 MILLIGRAM, QW
     Dates: start: 20250905

REACTIONS (4)
  - Cardiac flutter [Unknown]
  - Injection site pain [Unknown]
  - Muscular weakness [Not Recovered/Not Resolved]
  - Product storage error [Unknown]

NARRATIVE: CASE EVENT DATE: 20250101
